FAERS Safety Report 20575960 (Version 1)
Quarter: 2022Q1

REPORT INFORMATION
  Report Type: Report from Study
  Country: JP (occurrence: JP)
  Receive Date: 20220310
  Receipt Date: 20220310
  Transmission Date: 20220423
  Serious: Yes (Hospitalization, Disabling, Other)
  Sender: FDA-Public Use
  Company Number: JP-JNJFOC-A-CH2017-159811

PATIENT
  Age: 72 Year
  Sex: Female

DRUGS (13)
  1. TRACLEER [Suspect]
     Active Substance: BOSENTAN
     Indication: Skin ulcer
     Dosage: 62.5 MG, BID
     Route: 048
     Dates: start: 20160205, end: 20160308
  2. TRACLEER [Suspect]
     Active Substance: BOSENTAN
     Indication: Skin ulcer
     Dosage: 62.5 MG, QD
     Route: 048
     Dates: start: 20160309, end: 20160614
  3. TRACLEER [Suspect]
     Active Substance: BOSENTAN
     Dosage: 62.5 MG, BID
     Route: 048
     Dates: start: 20160615, end: 20161206
  4. TRACLEER [Suspect]
     Active Substance: BOSENTAN
     Dosage: 62.5 MG, TID
     Route: 048
     Dates: start: 20161207, end: 20170330
  5. TRACLEER [Suspect]
     Active Substance: BOSENTAN
     Route: 048
     Dates: start: 20170405, end: 20170628
  6. ALENDRONATE [Concomitant]
     Active Substance: ALENDRONATE SODIUM
     Indication: Osteoporosis
     Route: 048
  7. TOCOPHERYL NICOTINATE, D-.ALPHA. [Concomitant]
     Active Substance: TOCOPHERYL NICOTINATE, D-.ALPHA.
     Indication: Peripheral vascular disorder
     Route: 048
  8. PLETAL [Concomitant]
     Active Substance: CILOSTAZOL
     Indication: Peripheral arterial occlusive disease
     Route: 048
     Dates: start: 20150901
  9. PLETAL [Concomitant]
     Active Substance: CILOSTAZOL
     Route: 048
     Dates: start: 20170628
  10. ASPIRIN [Concomitant]
     Active Substance: ASPIRIN
     Indication: Peripheral arterial occlusive disease
     Route: 048
     Dates: start: 20150901
  11. OPALMON [Concomitant]
     Active Substance: LIMAPROST
     Indication: Peripheral arterial occlusive disease
     Route: 048
     Dates: start: 20150901, end: 20151012
  12. VITAMINS NOS [Concomitant]
     Active Substance: VITAMINS
     Indication: Peripheral arterial occlusive disease
     Route: 048
     Dates: start: 20151013, end: 20170628
  13. ERYTHROPOIETIN [Concomitant]
     Active Substance: ERYTHROPOIETIN
     Indication: Nephrogenic anaemia
     Route: 042
     Dates: start: 20170410, end: 20170508

REACTIONS (5)
  - Scleroderma renal crisis [Unknown]
  - Cellulitis [Recovered/Resolved]
  - Spinal compression fracture [Recovered/Resolved]
  - Hot flush [Recovered/Resolved]
  - Iron deficiency anaemia [Not Recovered/Not Resolved]

NARRATIVE: CASE EVENT DATE: 20160212
